FAERS Safety Report 16883988 (Version 1)
Quarter: 2019Q4

REPORT INFORMATION
  Report Type: Spontaneous
  Country: CO (occurrence: CO)
  Receive Date: 20191004
  Receipt Date: 20191004
  Transmission Date: 20200122
  Serious: Yes (Other)
  Sender: FDA-Public Use
  Company Number: CO-TEVA-2019-CO-1117009

PATIENT
  Age: 6 Year

DRUGS (1)
  1. EMTHEXATE (METHOTREXATE) [Suspect]
     Active Substance: METHOTREXATE
     Indication: ACUTE LYMPHOCYTIC LEUKAEMIA
     Route: 037

REACTIONS (3)
  - Headache [Unknown]
  - Acute lymphocytic leukaemia [Unknown]
  - Arachnoiditis [Unknown]
